FAERS Safety Report 6128816-4 (Version None)
Quarter: 2009Q1

REPORT INFORMATION
  Report Type: 
  Country: None (occurrence: None)
  Receive Date: 20090320
  Receipt Date: 20090305
  Transmission Date: 20090719
  Serious: Yes (Hospitalization)
  Sender: FDA-Public Use
  Company Number: 230006M09ESP

PATIENT
  Age: 31 Year
  Sex: Female

DRUGS (2)
  1. REBIF [Suspect]
     Indication: MULTIPLE SCLEROSIS
     Dosage: 0.5 ML, 3 IN 1 WEEKS, SUBCUTANEOUS
     Route: 058
     Dates: start: 19990501, end: 20080319
  2. METHYLPREDNISOLONE 16MG TAB [Suspect]
     Indication: MULTIPLE SCLEROSIS
     Dosage: INTRAVENOUS (NOT OTHERWISE SPECIFIED)
     Route: 042
     Dates: start: 20080220, end: 20080223

REACTIONS (2)
  - DRUG INTERACTION [None]
  - HEPATITIS [None]
